FAERS Safety Report 5941115-6 (Version None)
Quarter: 2008Q4

REPORT INFORMATION
  Report Type: 
  Country: None (occurrence: None)
  Receive Date: 20081104
  Receipt Date: 20081021
  Transmission Date: 20090506
  Serious: Yes (Death)
  Sender: FDA-Public Use
  Company Number: GE-GENENTECH-270330

PATIENT
  Age: 39 Year
  Sex: Female

DRUGS (4)
  1. MABTHERA [Suspect]
     Indication: CHRONIC LYMPHOCYTIC LEUKAEMIA
     Dosage: 375 MG/M2, UNK
     Route: 042
  2. MABTHERA [Suspect]
     Indication: LYMPHOCYTIC LYMPHOMA
  3. DEXAMETHASONE [Suspect]
     Indication: CHRONIC LYMPHOCYTIC LEUKAEMIA
     Dosage: 40 MG, UNK
     Route: 048
  4. DEXAMETHASONE [Suspect]
     Indication: LYMPHOCYTIC LYMPHOMA

REACTIONS (4)
  - HERPES ZOSTER [None]
  - PNEUMONIA [None]
  - SEPSIS [None]
  - SINUSITIS [None]
